FAERS Safety Report 6267018-8 (Version None)
Quarter: 2009Q3

REPORT INFORMATION
  Report Type: 
  Country: None (occurrence: None)
  Receive Date: 20090714
  Receipt Date: 20090331
  Transmission Date: 20100115
  Serious: No
  Sender: FDA-Public Use
  Company Number: US-BAYER-200917168NA

PATIENT
  Age: 20 Year
  Sex: Female
  Weight: 54 kg

DRUGS (1)
  1. YAZ [Suspect]
     Indication: CONTRACEPTION
     Route: 048
     Dates: start: 20081201

REACTIONS (6)
  - ADNEXA UTERI PAIN [None]
  - BREAST PAIN [None]
  - FATIGUE [None]
  - NAUSEA [None]
  - NO ADVERSE EVENT [None]
  - SOMNOLENCE [None]
